FAERS Safety Report 6149777-8 (Version None)
Quarter: 2009Q2

REPORT INFORMATION
  Report Type: 
  Country: None (occurrence: None)
  Receive Date: 20090409
  Receipt Date: 20090402
  Transmission Date: 20091009
  Serious: Yes (Hospitalization)
  Sender: FDA-Public Use
  Company Number: RE-AVENTIS-200911308FR

PATIENT
  Age: 19 Week
  Sex: Male

DRUGS (3)
  1. CLAFORAN [Suspect]
     Route: 042
     Dates: start: 20090401
  2. GENTAMICIN [Suspect]
     Route: 042
     Dates: start: 20090401
  3. PLASMA SUBSTITUTES AND PERFUSION SOLUTIONS [Suspect]
     Route: 042
     Dates: start: 20090401

REACTIONS (2)
  - DRUG ADMINISTRATION ERROR [None]
  - SKIN OEDEMA [None]
